FAERS Safety Report 9667618 (Version 1)
Quarter: 2013Q4

REPORT INFORMATION
  Report Type: Spontaneous
  Country: AR (occurrence: AR)
  Receive Date: 20131104
  Receipt Date: 20131104
  Transmission Date: 20140711
  Serious: Yes (Hospitalization)
  Sender: FDA-Public Use
  Company Number: AR-PFIZER INC-2013309920

PATIENT
  Age: 60 Year
  Sex: Female

DRUGS (3)
  1. GENOTROPIN [Suspect]
     Indication: GROWTH HORMONE DEFICIENCY
     Dosage: 50 MG, DAILY
     Route: 058
     Dates: start: 201305
  2. LEVOTHYROXINE [Concomitant]
     Indication: HYPOTHYROIDISM
     Dosage: UNK
     Route: 048
     Dates: start: 1998
  3. HYDROCORTISONE [Concomitant]
     Dosage: UNK
     Route: 048
     Dates: start: 2011

REACTIONS (2)
  - Blood pressure decreased [Recovered/Resolved]
  - Somnolence [Recovered/Resolved]
